FAERS Safety Report 5801307-3 (Version None)
Quarter: 2008Q3

REPORT INFORMATION
  Report Type: 
  Country: None (occurrence: None)
  Receive Date: 20080707
  Receipt Date: 20080624
  Transmission Date: 20090109
  Serious: Yes (Other)
  Sender: FDA-Public Use
  Company Number: FR-JNJFOC-20080605759

PATIENT
  Sex: Female

DRUGS (11)
  1. RISPERDAL [Suspect]
     Indication: NEUROSIS
     Route: 048
  2. EQUANIL [Suspect]
     Indication: ANXIETY
     Route: 048
  3. LOVENOX [Suspect]
     Indication: THROMBOSIS PROPHYLAXIS
     Route: 058
  4. SOLIAN [Suspect]
     Indication: NEUROSIS
     Route: 048
  5. LYSANXIA [Suspect]
     Indication: NEUROSIS
     Route: 048
  6. ANAFRANIL [Suspect]
     Indication: DEPRESSION
     Dosage: 25 TO 100 MG DAILY
     Route: 042
  7. ATARAX [Concomitant]
  8. ATARAX [Concomitant]
  9. NOCTAMIDE [Concomitant]
  10. NOCTAMIDE [Concomitant]
  11. CORGARD [Concomitant]

REACTIONS (2)
  - AGRANULOCYTOSIS [None]
  - LEUKOPENIA [None]
